FAERS Safety Report 11168727 (Version 2)
Quarter: 2015Q2

REPORT INFORMATION
  Report Type: Spontaneous
  Country: IL (occurrence: IL)
  Receive Date: 20150605
  Receipt Date: 20150609
  Transmission Date: 20150821
  Serious: Yes (Hospitalization)
  Sender: FDA-Public Use
  Company Number: IL-TEVA-566188ISR

PATIENT
  Age: 40 Year
  Sex: Female

DRUGS (2)
  1. TERBINAFINE [Suspect]
     Active Substance: TERBINAFINE
     Route: 048
     Dates: start: 201505
  2. VITAMIN B12 [Concomitant]
     Active Substance: CYANOCOBALAMIN
     Indication: VITAMIN SUPPLEMENTATION
     Route: 065

REACTIONS (8)
  - Jaundice [Recovering/Resolving]
  - Thrombocytopenic purpura [Recovering/Resolving]
  - Asthenia [Recovered/Resolved]
  - Chromaturia [Recovered/Resolved]
  - Anaemia [Unknown]
  - Vomiting [Recovered/Resolved]
  - Renal failure [Recovering/Resolving]
  - Thrombocytopenia [Unknown]
